FAERS Safety Report 17254856 (Version 1)
Quarter: 2020Q1

REPORT INFORMATION
  Report Type: Spontaneous
  Country: AU (occurrence: AU)
  Receive Date: 20200109
  Receipt Date: 20200109
  Transmission Date: 20200409
  Serious: Yes (Hospitalization)
  Sender: FDA-Public Use
  Company Number: AU-ELI_LILLY_AND_COMPANY-AU202001003303

PATIENT
  Age: 33 Year
  Sex: Male

DRUGS (1)
  1. ZYPREXA RELPREVV [Suspect]
     Active Substance: OLANZAPINE PAMOATE
     Indication: SCHIZOAFFECTIVE DISORDER
     Dosage: 300 MG, EVERY TWO WEEKS
     Route: 030
     Dates: start: 201911

REACTIONS (2)
  - Unresponsive to stimuli [Recovering/Resolving]
  - Post-injection delirium sedation syndrome [Recovering/Resolving]

NARRATIVE: CASE EVENT DATE: 20191211
